FAERS Safety Report 17602586 (Version 1)
Quarter: 2020Q1

REPORT INFORMATION
  Report Type: Spontaneous
  Country: US (occurrence: US)
  Receive Date: 20200330
  Receipt Date: 20200330
  Transmission Date: 20200409
  Serious: No
  Sender: FDA-Public Use
  Company Number: US-SEPTODONT-201905184

PATIENT
  Sex: Female

DRUGS (2)
  1. SCHEIN PRIVATE LABEL LIDOCAINE 100 (EPINEPHRINE BITARTRATE\LIDOCAINE HYDROCHLORIDE) [Suspect]
     Active Substance: EPINEPHRINE BITARTRATE\LIDOCAINE HYDROCHLORIDE
     Indication: DENTAL LOCAL ANAESTHESIA
     Dosage: HAD TO GIVE MORE ANAESTHETIC THAN USUAL, SHE COULD NOT RECALL EXACT AMOUNTS, BUT A WHOLE BUNCH
     Route: 004
     Dates: start: 201903, end: 201903
  2. SEPTOCAINE [Suspect]
     Active Substance: ARTICAINE HYDROCHLORIDE\EPINEPHRINE BITARTRATE
     Indication: DENTAL LOCAL ANAESTHESIA
     Dosage: HAD TO GIVE MORE ANAESTHETIC THAN USUAL, SHE COULD NOT RECALL EXACT AMOUNTS, BUT A WHOLE BUNCH
     Route: 004
     Dates: start: 201903, end: 201903

REACTIONS (1)
  - Drug ineffective [Recovered/Resolved]

NARRATIVE: CASE EVENT DATE: 201903
